FAERS Safety Report 7008248-7 (Version None)
Quarter: 2010Q3

REPORT INFORMATION
  Report Type: 
  Country: None (occurrence: None)
  Receive Date: 20100922
  Receipt Date: 20100921
  Transmission Date: 20110219
  Serious: No
  Sender: FDA-Public Use
  Company Number: US-B.I. PHARMACEUTICALS,INC./RIDGEFIELD-2009-BP-10641BP

PATIENT
  Sex: Female
  Weight: 90.72 kg

DRUGS (1)
  1. MIRAPEX [Suspect]
     Indication: RESTLESS LEGS SYNDROME
     Dates: start: 20020901, end: 20070801

REACTIONS (3)
  - PAIN [None]
  - PATHOLOGICAL GAMBLING [None]
  - STRESS [None]
